FAERS Safety Report 12472463 (Version 1)
Quarter: 2016Q2

REPORT INFORMATION
  Report Type: Spontaneous
  Country: US (occurrence: US)
  Receive Date: 20160616
  Receipt Date: 20160616
  Transmission Date: 20160815
  Serious: No
  Sender: FDA-Public Use
  Company Number: US-ALLERGAN-1647685

PATIENT
  Age: 58 Year
  Sex: Female

DRUGS (2)
  1. PROGESTERONE UNKNOWN PRODUCT [Suspect]
     Active Substance: PROGESTERONE
     Indication: HOT FLUSH
     Dosage: 1 APPLICATOR, 2/WEEK
     Route: 067
  2. DIVIGEL [Concomitant]
     Active Substance: ESTRADIOL
     Indication: HORMONE REPLACEMENT THERAPY
     Dosage: QD TO LEG
     Route: 061

REACTIONS (1)
  - Vaginal discharge [Not Recovered/Not Resolved]
